FAERS Safety Report 10798351 (Version 2)
Quarter: 2015Q1

REPORT INFORMATION
  Report Type: Report from Study
  Country: MX (occurrence: MX)
  Receive Date: 20150216
  Receipt Date: 20150310
  Transmission Date: 20150721
  Serious: Yes (Hospitalization)
  Sender: FDA-Public Use
  Company Number: PHHO2014MX015874

PATIENT
  Age: 51 Year
  Sex: Male
  Weight: 71.7 kg

DRUGS (6)
  1. CICLOSPORIN [Suspect]
     Active Substance: CYCLOSPORINE
     Indication: PRODUCT USED FOR UNKNOWN INDICATION
     Route: 065
  2. MYCOPHENOLATE MOFETIL. [Concomitant]
     Active Substance: MYCOPHENOLATE MOFETIL
     Indication: IMMUNOSUPPRESSION
     Dosage: 500 MG, UNK
     Route: 048
  3. DANAZOL. [Concomitant]
     Active Substance: DANAZOL
     Indication: MYELODYSPLASTIC SYNDROME
     Dosage: 200 MG, UNK
     Route: 048
  4. PLACEBO [Suspect]
     Active Substance: UNSPECIFIED INGREDIENT
     Indication: MYELODYSPLASTIC SYNDROME
     Dosage: DOUBLE BLIND
     Route: 048
     Dates: start: 20140604
  5. BLINDED ICL670A [Suspect]
     Active Substance: DEFERASIROX
     Indication: MYELODYSPLASTIC SYNDROME
     Dosage: DOUBLE BLIND
     Route: 048
     Dates: start: 20140604
  6. BLINDED NO TREATMENT RECEIVED [Suspect]
     Active Substance: UNSPECIFIED INGREDIENT
     Indication: MYELODYSPLASTIC SYNDROME
     Dosage: DOUBLE BLIND
     Route: 048
     Dates: start: 20140604

REACTIONS (3)
  - Anaemia [Unknown]
  - Anaemia [Recovered/Resolved]
  - Gingival hyperplasia [Unknown]

NARRATIVE: CASE EVENT DATE: 20141126
